FAERS Safety Report 21757237 (Version 1)
Quarter: 2022Q4

REPORT INFORMATION
  Report Type: Spontaneous
  Country: US (occurrence: US)
  Receive Date: 20221220
  Receipt Date: 20221220
  Transmission Date: 20230113
  Serious: No
  Sender: FDA-Public Use
  Company Number: US-CELLTRION INC.-2022US012696

PATIENT

DRUGS (1)
  1. TRUXIMA [Suspect]
     Active Substance: RITUXIMAB-ABBS
     Indication: Product used for unknown indication
     Dosage: UNK
     Dates: end: 20220725

REACTIONS (7)
  - Lethargy [Unknown]
  - Dry mouth [Unknown]
  - Lymphadenopathy [Unknown]
  - Oropharyngeal pain [Unknown]
  - Dyspnoea [Unknown]
  - Diarrhoea [Unknown]
  - Chills [Unknown]

NARRATIVE: CASE EVENT DATE: 20220725
